FAERS Safety Report 21959403 (Version 4)
Quarter: 2023Q4

REPORT INFORMATION
  Report Type: Spontaneous
  Country: US (occurrence: US)
  Receive Date: 20230206
  Receipt Date: 20231213
  Transmission Date: 20240110
  Serious: No
  Sender: FDA-Public Use
  Company Number: US-PFIZER INC-PV202300021992

PATIENT
  Age: 74 Year
  Sex: Female

DRUGS (1)
  1. IBRANCE [Suspect]
     Active Substance: PALBOCICLIB
     Indication: Breast cancer
     Dosage: TAKE ONE (1) TABLET ONCE DAILY 21 DAYS ON 7 DAYS OFF
     Route: 048

REACTIONS (2)
  - Neoplasm progression [Unknown]
  - Product prescribing issue [Unknown]
